FAERS Safety Report 4868336-8 (Version None)
Quarter: 2005Q4

REPORT INFORMATION
  Report Type: 
  Country: None (occurrence: None)
  Receive Date: 20051229
  Receipt Date: 20051219
  Transmission Date: 20060501
  Serious: Yes (Hospitalization)
  Sender: FDA-Public Use
  Company Number: JP-MERCK-0512USA03720

PATIENT
  Age: 79 Year
  Sex: Male

DRUGS (7)
  1. PEPCID [Suspect]
     Route: 042
     Dates: start: 20051217, end: 20051219
  2. CEFMETAZON [Concomitant]
     Route: 042
     Dates: start: 20051217, end: 20051219
  3. AMINO ACIDS (UNSPECIFIED) AND CARBOHYDRATES (UNSPECIFIED) AND ELECTROL [Concomitant]
     Route: 042
     Dates: start: 20051217
  4. [THERAPY UNSPECIFIED] [Concomitant]
     Route: 042
     Dates: start: 20051217
  5. [THERAPY UNSPECIFIED] [Concomitant]
     Route: 048
  6. BIOFERMIN [Concomitant]
     Route: 048
  7. ZYLORIC [Concomitant]
     Route: 048

REACTIONS (1)
  - BLOOD CREATINE PHOSPHOKINASE INCREASED [None]
